FAERS Safety Report 8819696 (Version 2)
Quarter: 2012Q4

REPORT INFORMATION
  Report Type: 
  Country: US (occurrence: US)
  Receive Date: 20121001
  Receipt Date: 20121018
  Transmission Date: 20130627
  Serious: Yes (Hospitalization, Other)
  Sender: FDA-Public Use
  Company Number: US-JNJFOC-20120909813

PATIENT
  Age: 33 Year
  Sex: Female

DRUGS (16)
  1. FLEXERIL [Suspect]
     Indication: BLADDER DISORDER
     Route: 048
  2. HEPARIN [Concomitant]
  3. BICARBONATE [Concomitant]
  4. LIDOCAINE [Concomitant]
  5. XANAX [Concomitant]
     Indication: ANXIETY
     Route: 048
  6. ZOFRAN [Concomitant]
     Indication: NAUSEA
     Route: 048
  7. VALIUM [Concomitant]
     Indication: PAIN
     Route: 067
  8. PHENOBARBITAL [Concomitant]
     Indication: CONVULSION
     Route: 048
  9. BACTRIM DS [Concomitant]
     Indication: INFECTION
     Route: 048
  10. MACRODANTIN [Concomitant]
     Indication: INFECTION
     Route: 048
  11. URELLE [Concomitant]
     Indication: BURNING SENSATION
     Route: 048
  12. DEPAKOTE [Concomitant]
     Indication: CONVULSION
     Route: 048
  13. VIVELLE [Concomitant]
     Indication: HORMONE REPLACEMENT THERAPY
  14. LIDOCAINE [Concomitant]
     Indication: HYPOAESTHESIA
     Route: 067
  15. LUNESTA [Concomitant]
     Indication: SLEEP DISORDER THERAPY
     Route: 048
  16. NORCO [Concomitant]
     Indication: PAIN
     Route: 048

REACTIONS (2)
  - Cystitis interstitial [Unknown]
  - Drug ineffective [Unknown]
